FAERS Safety Report 14388787 (Version 2)
Quarter: 2019Q2

REPORT INFORMATION
  Report Type: Spontaneous
  Country: US (occurrence: US)
  Receive Date: 20180115
  Receipt Date: 20190612
  Transmission Date: 20190711
  Serious: Yes (Other)
  Sender: FDA-Public Use
  Company Number: US-SA-2017SA224728

PATIENT
  Age: 47 Year
  Sex: Female
  Weight: 120.2 kg

DRUGS (4)
  1. TAXOTERE [Suspect]
     Active Substance: DOCETAXEL
     Indication: BREAST CANCER FEMALE
     Dosage: 176 MG,Q3W
     Route: 042
     Dates: start: 20110408, end: 20110408
  2. HERCEPTIN [Concomitant]
     Active Substance: TRASTUZUMAB
     Dosage: 726 MG
  3. PARAPLATIN [Concomitant]
     Active Substance: CARBOPLATIN
     Dosage: 750 MG
  4. TAXOTERE [Suspect]
     Active Substance: DOCETAXEL
     Dosage: 176 MG,Q3W
     Route: 042
     Dates: start: 20110729, end: 20110729

REACTIONS (2)
  - Psychological trauma [Unknown]
  - Alopecia [Recovering/Resolving]

NARRATIVE: CASE EVENT DATE: 201112
